FAERS Safety Report 16999040 (Version 1)
Quarter: 2019Q4

REPORT INFORMATION
  Report Type: Spontaneous
  Country: US (occurrence: US)
  Receive Date: 20191105
  Receipt Date: 20191105
  Transmission Date: 20200122
  Serious: Yes (Hospitalization, Other)
  Sender: FDA-Public Use
  Company Number: US-RADIUS HEALTH, INC.-2019US002990

PATIENT
  Age: 70 Year
  Sex: Female

DRUGS (1)
  1. TYMLOS [Suspect]
     Active Substance: ABALOPARATIDE
     Indication: OSTEOPOROSIS POSTMENOPAUSAL
     Dosage: 80 MCG, DAILY
     Route: 058
     Dates: start: 20190513, end: 20190820

REACTIONS (4)
  - Pain [Recovered/Resolved]
  - Nephrolithiasis [Unknown]
  - Injection site bruising [Unknown]
  - Palpitations [Unknown]

NARRATIVE: CASE EVENT DATE: 20190820
